FAERS Safety Report 8355984-6 (Version None)
Quarter: 2012Q2

REPORT INFORMATION
  Report Type: 
  Country: None (occurrence: None)
  Receive Date: 20120511
  Receipt Date: 20120511
  Transmission Date: 20120825
  Serious: Yes (Death)
  Sender: FDA-Public Use
  Company Number: None

PATIENT
  Age: 57 Year
  Sex: Male
  Weight: 82.4 kg

DRUGS (2)
  1. CLOPIDOGREL [Suspect]
     Indication: ACUTE MYOCARDIAL INFARCTION
     Dosage: 75 MG DAILY PO 600 MG ONCE PO
     Route: 048
     Dates: start: 20120330, end: 20120330
  2. CLOPIDOGREL [Suspect]
     Indication: ACUTE MYOCARDIAL INFARCTION
     Dosage: 75 MG DAILY PO 600 MG ONCE PO
     Route: 048
     Dates: start: 20120328, end: 20120330

REACTIONS (13)
  - ACUTE MYOCARDIAL INFARCTION [None]
  - ARTERIOSCLEROSIS CORONARY ARTERY [None]
  - HAEMORRHAGE [None]
  - BRADYCARDIA [None]
  - HYPOAESTHESIA [None]
  - DEPRESSED LEVEL OF CONSCIOUSNESS [None]
  - HYPOXIA [None]
  - PUPILLARY DISORDER [None]
  - CARDIAC ARREST [None]
  - HYPOTENSION [None]
  - CARDIOMYOPATHY [None]
  - AREFLEXIA [None]
  - CEREBROVASCULAR ACCIDENT [None]
